FAERS Safety Report 19317702 (Version 1)
Quarter: 2021Q2

REPORT INFORMATION
  Report Type: Spontaneous
  Country: CA (occurrence: CA)
  Receive Date: 20210527
  Receipt Date: 20210527
  Transmission Date: 20210717
  Serious: Yes (Other)
  Sender: FDA-Public Use
  Company Number: CA-ROCHE-2834279

PATIENT
  Age: 50 Year
  Sex: Female

DRUGS (4)
  1. HUMIRA [Concomitant]
     Active Substance: ADALIMUMAB
     Route: 058
     Dates: start: 202006, end: 2021
  2. PREDNISONE. [Concomitant]
     Active Substance: PREDNISONE
     Dates: start: 202002
  3. RITUXAN [Suspect]
     Active Substance: RITUXIMAB
     Indication: PRODUCT USED FOR UNKNOWN INDICATION
     Dosage: 1 CYCLE, 2 DOSES
     Route: 065
     Dates: start: 202001
  4. METHOTREXATE SODIUM. [Suspect]
     Active Substance: METHOTREXATE SODIUM
     Indication: PRODUCT USED FOR UNKNOWN INDICATION
     Route: 058

REACTIONS (7)
  - Productive cough [Unknown]
  - Suspected COVID-19 [Unknown]
  - Rhinorrhoea [Unknown]
  - Drug ineffective [Unknown]
  - Oropharyngeal pain [Unknown]
  - Psoriatic arthropathy [Unknown]
  - Cutaneous vasculitis [Unknown]

NARRATIVE: CASE EVENT DATE: 202104
